FAERS Safety Report 8160264-8 (Version None)
Quarter: 2012Q1

REPORT INFORMATION
  Report Type: 
  Country: None (occurrence: None)
  Receive Date: 20120223
  Receipt Date: 20120223
  Transmission Date: 20120608
  Serious: No
  Sender: FDA-Public Use
  Company Number: None

PATIENT
  Age: 77 Year
  Sex: Female
  Weight: 68 kg

DRUGS (1)
  1. FERAHEME [Suspect]
     Indication: IRON DEFICIENCY ANAEMIA
     Dosage: 510MG
     Route: 040
     Dates: start: 20120206, end: 20120206

REACTIONS (4)
  - BACK PAIN [None]
  - DYSPNOEA [None]
  - FLUSHING [None]
  - RESTLESSNESS [None]
